FAERS Safety Report 5012008-6 (Version None)
Quarter: 2006Q2

REPORT INFORMATION
  Report Type: 
  Country: None (occurrence: None)
  Receive Date: 20060524
  Receipt Date: 20060511
  Transmission Date: 20061013
  Serious: Yes (Hospitalization, Disabling, Other)
  Sender: FDA-Public Use
  Company Number: 163-20785-06040396

PATIENT
  Age: 69 Year
  Sex: Male

DRUGS (12)
  1. THALOMID [Suspect]
     Indication: MULTIPLE MYELOMA
     Dosage: SEE IMAGE
     Route: 048
     Dates: start: 20060201, end: 20060401
  2. THALOMID [Suspect]
     Indication: MULTIPLE MYELOMA
     Dosage: SEE IMAGE
     Route: 048
     Dates: start: 20051101
  3. DEXAMETHASONE [Suspect]
     Indication: MULTIPLE MYELOMA
     Dates: end: 20060401
  4. VELCADE [Suspect]
     Indication: MULTIPLE MYELOMA
     Dates: end: 20060401
  5. ACYCLOVIR [Concomitant]
  6. ACETYLSALICYLIC ACID SRT [Concomitant]
  7. LISINOPRIL [Concomitant]
  8. COUMADIN [Concomitant]
  9. LIPITOR [Concomitant]
  10. VFEND [Concomitant]
  11. FOLIC ACID [Concomitant]
  12. PLAVIX [Concomitant]

REACTIONS (12)
  - ABASIA [None]
  - ASTHENIA [None]
  - BLOOD ALBUMIN DECREASED [None]
  - DYSSTASIA [None]
  - ECCHYMOSIS [None]
  - FALL [None]
  - FLUID RETENTION [None]
  - HAEMOGLOBIN DECREASED [None]
  - OEDEMA PERIPHERAL [None]
  - PAIN [None]
  - THROMBOCYTOPENIA [None]
  - WEIGHT INCREASED [None]
